FAERS Safety Report 23449116 (Version 1)
Quarter: 2024Q1

REPORT INFORMATION
  Report Type: Report from Study
  Country: AR (occurrence: AR)
  Receive Date: 20240128
  Receipt Date: 20240128
  Transmission Date: 20240410
  Serious: Yes (Other)
  Sender: FDA-Public Use
  Company Number: AR-ABBVIE-5608240

PATIENT
  Age: 44 Year
  Sex: Female

DRUGS (1)
  1. HUMIRA [Suspect]
     Active Substance: ADALIMUMAB
     Indication: Rheumatoid arthritis
     Dosage: DOSE DELAYED, FORM STRENGTH 40 MILLIGRAM
     Route: 058
     Dates: start: 20231106

REACTIONS (3)
  - Periodontitis [Recovering/Resolving]
  - Gingival discomfort [Unknown]
  - Tooth disorder [Unknown]

NARRATIVE: CASE EVENT DATE: 20231101
